FAERS Safety Report 9958564 (Version 1)
Quarter: 2014Q1

REPORT INFORMATION
  Report Type: Report from Study
  Country: FR (occurrence: FR)
  Receive Date: 20140305
  Receipt Date: 20140305
  Transmission Date: 20141002
  Serious: Yes (Other)
  Sender: FDA-Public Use
  Company Number: FR-ROCHE-1355509

PATIENT
  Sex: Male

DRUGS (18)
  1. RITUXIMAB [Suspect]
     Indication: RHEUMATOID ARTHRITIS
     Route: 065
     Dates: start: 20090421
  2. RITUXIMAB [Suspect]
     Route: 065
     Dates: start: 20090505
  3. RITUXIMAB [Suspect]
     Route: 065
     Dates: start: 20100118
  4. RITUXIMAB [Suspect]
     Route: 065
     Dates: start: 20100202
  5. RITUXIMAB [Suspect]
     Route: 065
     Dates: start: 20100917
  6. RITUXIMAB [Suspect]
     Route: 065
     Dates: start: 20101001
  7. RITUXIMAB [Suspect]
     Route: 065
     Dates: start: 20111004
  8. RITUXIMAB [Suspect]
     Route: 065
     Dates: start: 20111018
  9. RITUXIMAB [Suspect]
     Route: 065
     Dates: start: 20120601
  10. RITUXIMAB [Suspect]
     Route: 065
     Dates: start: 20120615
  11. RITUXIMAB [Suspect]
     Route: 065
     Dates: start: 20130213
  12. RITUXIMAB [Suspect]
     Route: 065
     Dates: start: 20130328
  13. CORTANCYL [Concomitant]
     Route: 065
     Dates: start: 20100118
  14. CORTANCYL [Concomitant]
     Route: 065
     Dates: start: 20100202
  15. CORTANCYL [Concomitant]
     Route: 065
     Dates: start: 20100917
  16. CORTANCYL [Concomitant]
     Route: 065
     Dates: start: 20101001
  17. SOLU-MEDROL [Concomitant]
     Route: 042
     Dates: start: 20130213
  18. SOLU-MEDROL [Concomitant]
     Route: 042
     Dates: start: 20130328

REACTIONS (8)
  - Head injury [Recovered/Resolved]
  - Back pain [Recovered/Resolved]
  - Forearm fracture [Recovered/Resolved]
  - Haemoptysis [Recovered/Resolved]
  - Large intestine polyp [Recovered/Resolved]
  - Arthralgia [Recovered/Resolved]
  - Infusion related reaction [Recovered/Resolved]
  - Abdominal pain [Recovered/Resolved]
